FAERS Safety Report 22229020 (Version 1)
Quarter: 2023Q2

REPORT INFORMATION
  Report Type: Spontaneous
  Country: US (occurrence: US)
  Receive Date: 20230419
  Receipt Date: 20230419
  Transmission Date: 20230722
  Serious: No
  Sender: FDA-Public Use
  Company Number: US-SCILEX PHARMACEUTICALS INC.-2023SCX00001

PATIENT
  Sex: Female

DRUGS (2)
  1. ZTLIDO [Suspect]
     Active Substance: LIDOCAINE
     Indication: Herpes zoster
     Dosage: 1 PATCH, ONCE
     Route: 061
     Dates: start: 20230103
  2. ZTLIDO [Suspect]
     Active Substance: LIDOCAINE
     Indication: Pain

REACTIONS (3)
  - Throat tightness [Unknown]
  - Abdominal pain [Unknown]
  - Diarrhoea [Unknown]

NARRATIVE: CASE EVENT DATE: 20230103
